FAERS Safety Report 5702217-2 (Version None)
Quarter: 2008Q2

REPORT INFORMATION
  Report Type: 
  Country: None (occurrence: None)
  Receive Date: 20080411
  Receipt Date: 20080204
  Transmission Date: 20081010
  Serious: No
  Sender: FDA-Public Use
  Company Number: US-ABBOTT-08P-163-0436811-00

PATIENT
  Age: 68 Year
  Sex: Female
  Weight: 92.162 kg

DRUGS (1)
  1. DEPAKOTE [Suspect]
     Indication: MIGRAINE
     Route: 048
     Dates: start: 19950101, end: 20020101

REACTIONS (1)
  - ALOPECIA [None]
